FAERS Safety Report 6094081-X (Version None)
Quarter: 2009Q1

REPORT INFORMATION
  Report Type: 
  Country: None (occurrence: None)
  Receive Date: 20090226
  Receipt Date: 20090223
  Transmission Date: 20090719
  Serious: Yes (Death)
  Sender: FDA-Public Use
  Company Number: JP-JNJFOC-20090101515

PATIENT
  Sex: Male
  Weight: 49 kg

DRUGS (22)
  1. FENTANYL [Suspect]
     Route: 062
  2. FENTANYL [Suspect]
     Route: 062
  3. FENTANYL [Suspect]
     Route: 062
  4. FENTANYL [Suspect]
     Route: 062
  5. FENTANYL [Suspect]
     Route: 062
  6. FENTANYL [Suspect]
     Route: 062
  7. FENTANYL [Suspect]
     Route: 062
  8. FENTANYL [Suspect]
     Route: 062
  9. FENTANYL [Suspect]
     Route: 062
  10. FENTANYL [Suspect]
     Route: 062
  11. FENTANYL [Suspect]
     Indication: METASTASES TO BONE
     Route: 062
  12. PAXIL [Suspect]
     Indication: METASTASES TO BONE
     Route: 048
  13. TRYPTANOL [Suspect]
     Indication: DRUG USE FOR UNKNOWN INDICATION
     Route: 065
  14. MORPHINE [Concomitant]
     Route: 058
  15. MORPHINE [Concomitant]
     Route: 058
  16. MORPHINE [Concomitant]
     Route: 058
  17. MORPHINE [Concomitant]
     Route: 058
  18. MORPHINE [Concomitant]
     Indication: METASTASES TO BONE
     Route: 058
  19. NAIXAN [Concomitant]
     Indication: METASTASES TO BONE
     Route: 048
  20. GASMOTIN [Concomitant]
     Indication: CONSTIPATION
     Route: 048
  21. MOBIC [Concomitant]
     Indication: METASTASES TO BONE
     Route: 048
  22. PREDNISOLONE [Concomitant]
     Indication: HYPOGLYCAEMIA
     Route: 048

REACTIONS (4)
  - ANOREXIA [None]
  - CONSTIPATION [None]
  - INAPPROPRIATE SCHEDULE OF DRUG ADMINISTRATION [None]
  - LUNG CANCER METASTATIC [None]
